FAERS Safety Report 5119832-X (Version None)
Quarter: 2006Q3

REPORT INFORMATION
  Report Type: 
  Country: None (occurrence: None)
  Receive Date: 20060928
  Receipt Date: 20060919
  Transmission Date: 20061208
  Serious: Yes (Death)
  Sender: FDA-Public Use
  Company Number: 2006114101

PATIENT
  Age: 41 Year
  Sex: Male

DRUGS (2)
  1. ETHYL ALCOHOL (ETHYL ALCOHOL ) [Suspect]
     Dosage: ORAL
     Route: 048
  2. TRAMADOL HCL [Suspect]
     Dosage: ORAL
     Route: 048

REACTIONS (2)
  - CARDIO-RESPIRATORY ARREST [None]
  - CONVULSION [None]
